FAERS Safety Report 9964559 (Version 1)
Quarter: 2014Q1

REPORT INFORMATION
  Report Type: Spontaneous
  Country: US (occurrence: US)
  Receive Date: 20140305
  Receipt Date: 20140305
  Transmission Date: 20141002
  Serious: No
  Sender: FDA-Public Use
  Company Number: US-AMGEN-USASP2013086074

PATIENT
  Age: 24 Year
  Sex: Male

DRUGS (1)
  1. ENBREL [Suspect]
     Indication: ILL-DEFINED DISORDER
     Dosage: 50 MG, QWK
     Route: 058
     Dates: start: 2011

REACTIONS (1)
  - Nail discolouration [Unknown]
